FAERS Safety Report 14673598 (Version 2)
Quarter: 2018Q2

REPORT INFORMATION
  Report Type: Spontaneous
  Country: PT (occurrence: PT)
  Receive Date: 20180323
  Receipt Date: 20180416
  Transmission Date: 20180711
  Serious: Yes (Other)
  Sender: FDA-Public Use
  Company Number: PHHY2018PT048079

PATIENT
  Age: 30 Year
  Sex: Female

DRUGS (1)
  1. GILENYA [Suspect]
     Active Substance: FINGOLIMOD HYDROCHLORIDE
     Indication: RELAPSING-REMITTING MULTIPLE SCLEROSIS
     Dosage: UNK
     Route: 065
     Dates: start: 2011

REACTIONS (5)
  - JC polyomavirus test positive [Unknown]
  - Malignant melanoma [Unknown]
  - Multiple sclerosis relapse [Unknown]
  - Lymphocyte count decreased [Unknown]
  - Eye disorder [Unknown]
